FAERS Safety Report 5943522-4 (Version None)
Quarter: 2008Q4

REPORT INFORMATION
  Report Type: 
  Country: None (occurrence: None)
  Receive Date: 20081104
  Receipt Date: 20081022
  Transmission Date: 20090506
  Serious: Yes (Other)
  Sender: FDA-Public Use
  Company Number: 2008S1019238

PATIENT
  Age: 23 Year
  Sex: Female

DRUGS (3)
  1. AMNESTEEM [Suspect]
     Dosage: 40 MG TWICE A DAY ORAL; 40 MG DAILY ORAL
     Route: 048
     Dates: start: 20060323, end: 20060423
  2. AMNESTEEM [Suspect]
     Dosage: 40 MG TWICE A DAY ORAL; 40 MG DAILY ORAL
     Route: 048
     Dates: start: 20080919, end: 20081019
  3. ORAL CONTRACEPTIVE NOS [Concomitant]

REACTIONS (2)
  - PREGNANCY [None]
  - PREGNANCY ON ORAL CONTRACEPTIVE [None]
